FAERS Safety Report 18660964 (Version 1)
Quarter: 2020Q4

REPORT INFORMATION
  Report Type: Other
  Country: FI (occurrence: FI)
  Receive Date: 20201224
  Receipt Date: 20201224
  Transmission Date: 20210114
  Serious: Yes (Death)
  Sender: FDA-Public Use
  Company Number: FI-STRIDES ARCOLAB LIMITED-2020SP016141

PATIENT
  Age: 74 Year
  Sex: Male

DRUGS (2)
  1. VANCOMYCIN [Suspect]
     Active Substance: VANCOMYCIN
     Indication: MENINGITIS
     Dosage: UNK
     Route: 042
     Dates: start: 20200805, end: 20200816
  2. CLOXACILLIN STRAGEN [Concomitant]
     Indication: MENINGITIS
     Dosage: 12 GRAM DAILY
     Route: 042
     Dates: start: 20200805

REACTIONS (2)
  - Renal tubular necrosis [Fatal]
  - Red man syndrome [Fatal]

NARRATIVE: CASE EVENT DATE: 20200805
